FAERS Safety Report 8446898-1 (Version None)
Quarter: 2012Q2

REPORT INFORMATION
  Report Type: 
  Country: None (occurrence: None)
  Receive Date: 20120612
  Receipt Date: 20120612
  Transmission Date: 20120825
  Serious: No
  Sender: FDA-Public Use
  Company Number: None

PATIENT
  Sex: Male
  Weight: 62 kg

DRUGS (6)
  1. ETOPOSIDE [Suspect]
     Dosage: 581 MG
  2. RITUXIMAB (MOAB C2B8 ANDTI CD20, CHIMERIC) [Suspect]
     Dosage: 630 MG
  3. VINCRISTINE SULFATE [Suspect]
     Dosage: 2.69 MG
  4. DOXORUBICIN HYDROCHLORIDE [Suspect]
     Dosage: 116 MG
  5. CYCLOPHOSPHAMIDE [Suspect]
     Dosage: 2177 MG
  6. PREDNISONE [Suspect]
     Dosage: 1008 MG

REACTIONS (2)
  - NEUTROPENIA [None]
  - WHITE BLOOD CELL COUNT DECREASED [None]
